FAERS Safety Report 10404187 (Version 1)
Quarter: 2014Q1

REPORT INFORMATION
  Report Type: Spontaneous
  Country: US (occurrence: None)
  Receive Date: 20131226
  Receipt Date: 20131226
  Transmission Date: 20141002
  Serious: Yes (Disabling)
  Sender: FDA-Public Use
  Company Number: PHEH2013US009660

PATIENT
  Age: 58 Year
  Sex: Female

DRUGS (1)
  1. RECLAST (ZOLEDRONATE) SOLUTION FOR INJECTION [Suspect]
     Indication: OSTEOPOROSIS
     Dosage: 5 MG , ONCE PER YEAR
     Route: 042
     Dates: start: 20130418

REACTIONS (7)
  - Influenza like illness [None]
  - Injection site pain [None]
  - Asthenia [None]
  - Nausea [None]
  - Headache [None]
  - Pain [None]
  - Fatigue [None]
